FAERS Safety Report 25199652 (Version 1)
Quarter: 2025Q2

REPORT INFORMATION
  Report Type: Spontaneous
  Country: US (occurrence: US)
  Receive Date: 20250415
  Receipt Date: 20250415
  Transmission Date: 20250716
  Serious: Yes (Other)
  Sender: ELI LILLY AND CO
  Company Number: US-ELI_LILLY_AND_COMPANY-US202504004854

PATIENT

DRUGS (1)
  1. TRULICITY [Suspect]
     Active Substance: DULAGLUTIDE
     Indication: Product used for unknown indication
     Route: 065

REACTIONS (6)
  - Peripheral vascular disorder [Unknown]
  - Chronic kidney disease [Unknown]
  - Neuropathy peripheral [Unknown]
  - Diabetes mellitus inadequate control [Unknown]
  - Hypertension [Unknown]
  - Obesity [Unknown]
